FAERS Safety Report 20861764 (Version 1)
Quarter: 2022Q2

REPORT INFORMATION
  Report Type: Spontaneous
  Country: US (occurrence: US)
  Receive Date: 20220523
  Receipt Date: 20220523
  Transmission Date: 20220721
  Serious: No
  Sender: FDA-Public Use
  Company Number: US-CURIUM-2022000209

PATIENT
  Age: 67 Year
  Sex: Female

DRUGS (9)
  1. IOFLUPANE I 123 [Suspect]
     Active Substance: IOFLUPANE I-123
     Indication: Scan brain
     Route: 051
  2. NORVACS 5 mg tablet [Concomitant]
     Indication: Product used for unknown indication
     Route: 065
  3. LIPITOR 40 mg tablet [Concomitant]
     Indication: Product used for unknown indication
     Route: 065
  4. ARICEPT 5 mg tablet [Concomitant]
     Indication: Product used for unknown indication
     Route: 065
  5. PEPCIS 20 mg tablet [Concomitant]
     Indication: Product used for unknown indication
     Route: 065
  6. PRINIVIL ZESTRIL 10 mg tablet [Concomitant]
     Indication: Product used for unknown indication
     Route: 065
  7. ATIVAN 1 mg tablet [Concomitant]
     Indication: Product used for unknown indication
     Route: 065
  8. REMERON 15 mg tablet [Concomitant]
     Indication: Product used for unknown indication
     Route: 065
  9. LUGOL [Concomitant]
     Active Substance: IODINE\POTASSIUM IODIDE
     Indication: Computerised tomogram head
     Route: 065

REACTIONS (2)
  - Brain scan abnormal [Not Recovered/Not Resolved]
  - Drug ineffective [Not Recovered/Not Resolved]
